FAERS Safety Report 4467675-2 (Version None)
Quarter: 2004Q4

REPORT INFORMATION
  Report Type: 
  Country: None (occurrence: None)
  Receive Date: 20041001
  Receipt Date: 20040924
  Transmission Date: 20050328
  Serious: No
  Sender: FDA-Public Use
  Company Number: TPA2004A01163

PATIENT
  Sex: 0

DRUGS (2)
  1. ACTOS [Suspect]
     Dosage: 30 MG, UNKNOWN, PER ORAL
     Route: 048
  2. ACTOS [Suspect]
     Dosage: 45 MG, UNKNOWN, PER ORAL
     Route: 048

REACTIONS (2)
  - MEDICATION ERROR [None]
  - PHARMACEUTICAL PRODUCT COMPLAINT [None]
